FAERS Safety Report 25346946 (Version 1)
Quarter: 2025Q2

REPORT INFORMATION
  Report Type: Spontaneous
  Country: US (occurrence: None)
  Receive Date: 20250521
  Receipt Date: 20250521
  Transmission Date: 20250716
  Serious: Yes (Disabling)
  Sender: FDA-CTU
  Company Number: None

PATIENT
  Age: 30 Year
  Sex: Female

DRUGS (12)
  1. CIPROFLOXACIN [Suspect]
     Active Substance: CIPROFLOXACIN
  2. MAGNESIUM [Concomitant]
     Active Substance: MAGNESIUM
  3. VITAMIN D [Concomitant]
     Active Substance: VITAMIN D NOS
  4. FISH OIL [Concomitant]
     Active Substance: FISH OIL
  5. COENZYME Q10 [Concomitant]
     Active Substance: DIETARY SUPPLEMENT\UBIDECARENONE
  6. Acetyl cartinine [Concomitant]
  7. DIETARY SUPPLEMENT\RESVERATROL [Concomitant]
     Active Substance: DIETARY SUPPLEMENT\RESVERATROL
  8. Spm active [Concomitant]
  9. Toxin binder [Concomitant]
  10. Mito Q [Concomitant]
  11. GABA [Concomitant]
     Active Substance: HOMEOPATHICS
  12. COLLAGEN [Concomitant]
     Active Substance: COLLAGEN

REACTIONS (16)
  - Fatigue [None]
  - Brain fog [None]
  - Anxiety [None]
  - Photophobia [None]
  - Insomnia [None]
  - Photosensitivity reaction [None]
  - Pruritus [None]
  - Visual impairment [None]
  - Migraine [None]
  - Temporomandibular pain and dysfunction syndrome [None]
  - Gastrointestinal disorder [None]
  - Pelvic pain [None]
  - Back pain [None]
  - Palpitations [None]
  - Myalgia [None]
  - Activities of daily living decreased [None]

NARRATIVE: CASE EVENT DATE: 20211013
